FAERS Safety Report 17948707 (Version 1)
Quarter: 2020Q2

REPORT INFORMATION
  Report Type: Spontaneous
  Country: US (occurrence: US)
  Receive Date: 20200625
  Receipt Date: 20200625
  Transmission Date: 20200714
  Serious: No
  Sender: FDA-Public Use
  Company Number: US-NOVOPROD-728197

PATIENT
  Sex: Female

DRUGS (1)
  1. OZEMPIC [Suspect]
     Active Substance: SEMAGLUTIDE
     Indication: TYPE 2 DIABETES MELLITUS
     Dosage: 0.25 MG, QW
     Route: 058
     Dates: start: 202004

REACTIONS (12)
  - Dysgeusia [Recovered/Resolved]
  - Gastrointestinal disorder [Unknown]
  - Flatulence [Recovered/Resolved]
  - Hypophagia [Recovered/Resolved]
  - Myalgia [Recovered/Resolved]
  - Headache [Recovered/Resolved]
  - Abdominal distension [Recovered/Resolved]
  - Condition aggravated [Unknown]
  - Eructation [Recovered/Resolved]
  - Diarrhoea [Recovered/Resolved]
  - Weight increased [Unknown]
  - Nausea [Recovered/Resolved]

NARRATIVE: CASE EVENT DATE: 202004
